FAERS Safety Report 9769103 (Version 2)
Quarter: 2013Q4

REPORT INFORMATION
  Report Type: Spontaneous
  Country: None (occurrence: GB)
  Receive Date: 20131218
  Receipt Date: 20131218
  Transmission Date: 20140711
  Serious: Yes (Other)
  Sender: FDA-Public Use
  Company Number: 2012SP000391

PATIENT
  Age: 47 Year
  Sex: Female

DRUGS (2)
  1. VANCOMYCIN [Suspect]
  2. CEFTIN [Suspect]

REACTIONS (1)
  - Anaphylactic reaction [Unknown]
